FAERS Safety Report 5446445-2 (Version None)
Quarter: 2007Q3

REPORT INFORMATION
  Report Type: 
  Country: None (occurrence: None)
  Receive Date: 20070907
  Receipt Date: 20070831
  Transmission Date: 20080115
  Serious: Yes (Other)
  Sender: FDA-Public Use
  Company Number: JP-ASTRAZENECA-2007AP05523

PATIENT
  Age: 71 Year
  Sex: Male

DRUGS (4)
  1. CRESTOR [Suspect]
     Indication: HYPERLIPIDAEMIA
     Route: 048
     Dates: start: 20070702, end: 20070731
  2. ACTOS [Suspect]
     Route: 048
     Dates: end: 20070701
  3. TANATRIL [Suspect]
     Indication: HYPERTENSION
     Route: 048
     Dates: end: 20070701
  4. MEXITIL [Suspect]
     Route: 048
     Dates: end: 20070701

REACTIONS (1)
  - LIVER DISORDER [None]
